FAERS Safety Report 9842578 (Version 2)
Quarter: 2014Q3

REPORT INFORMATION
  Report Type: Spontaneous
  Country: US (occurrence: US)
  Receive Date: 20140124
  Receipt Date: 20140811
  Transmission Date: 20150326
  Serious: No
  Sender: FDA-Public Use
  Company Number: US-009507513-1401USA010208

PATIENT
  Sex: Female
  Weight: 92.63 kg

DRUGS (1)
  1. NUVARING [Suspect]
     Active Substance: ETHINYL ESTRADIOL\ETONOGESTREL
     Dosage: UNK
     Route: 067
     Dates: end: 200907

REACTIONS (6)
  - Cellulitis [Unknown]
  - Amenorrhoea [Unknown]
  - Animal scratch [Unknown]
  - Deep vein thrombosis [Unknown]
  - Factor V Leiden mutation [Unknown]
  - Deep vein thrombosis [Unknown]

NARRATIVE: CASE EVENT DATE: 200907
